FAERS Safety Report 25347046 (Version 1)
Quarter: 2025Q2

REPORT INFORMATION
  Report Type: Report from Study
  Country: US (occurrence: US)
  Receive Date: 20250522
  Receipt Date: 20250522
  Transmission Date: 20250717
  Serious: Yes (Hospitalization)
  Sender: EISAI
  Company Number: US-Eisai-EC-2025-189675

PATIENT
  Sex: Female

DRUGS (2)
  1. LENVATINIB [Suspect]
     Active Substance: LENVATINIB
     Indication: Acinic cell carcinoma of salivary gland
  2. PEMBROLIZUMAB [Suspect]
     Active Substance: PEMBROLIZUMAB
     Indication: Acinic cell carcinoma of salivary gland

REACTIONS (2)
  - Emotional distress [Unknown]
  - Mental disorder [Unknown]

NARRATIVE: CASE EVENT DATE: 20250509
